FAERS Safety Report 12788012 (Version 5)
Quarter: 2017Q4

REPORT INFORMATION
  Report Type: Report from Study
  Country: US (occurrence: US)
  Receive Date: 20160928
  Receipt Date: 20171018
  Transmission Date: 20180320
  Serious: Yes (Death, Hospitalization, Other)
  Sender: FDA-Public Use
  Company Number: US-TEVA-687750USA

PATIENT
  Age: 57 Year
  Sex: Male
  Weight: 129.71 kg

DRUGS (3)
  1. MK-3475 [Suspect]
     Active Substance: PEMBROLIZUMAB
     Indication: BLADDER CANCER
     Route: 042
     Dates: start: 20160620, end: 20160712
  2. AMLODIPINE [Suspect]
     Active Substance: AMLODIPINE BESYLATE
     Indication: HYPERTENSION
     Route: 065
     Dates: end: 20160714
  3. INCB024360 [Suspect]
     Active Substance: EPACADOSTAT
     Indication: BLADDER CANCER
     Dosage: 200 MILLIGRAM DAILY;
     Route: 048
     Dates: start: 20160620, end: 20160712

REACTIONS (7)
  - Acute kidney injury [Unknown]
  - Dyspnoea [Fatal]
  - Oedema [Fatal]
  - Pleural effusion [Recovering/Resolving]
  - Scrotal oedema [Recovering/Resolving]
  - Cellulitis of male external genital organ [Fatal]
  - Urinary tract obstruction [Fatal]

NARRATIVE: CASE EVENT DATE: 20160712
